FAERS Safety Report 20338476 (Version 1)
Quarter: 2022Q1

REPORT INFORMATION
  Report Type: Spontaneous
  Country: None (occurrence: A1)
  Receive Date: 20220115
  Receipt Date: 20220115
  Transmission Date: 20220423
  Serious: Yes (Other)
  Sender: FDA-Public Use
  Company Number: A1-Acella Pharmaceuticals, LLC-2123971

PATIENT
  Age: 61 Year
  Sex: Male

DRUGS (1)
  1. DOXYCYCLINE [Suspect]
     Active Substance: DOXYCYCLINE
     Indication: Dermatomyositis
     Route: 065

REACTIONS (5)
  - Syncope [Recovered/Resolved]
  - Anaemia [Recovered/Resolved]
  - Ulcer [Recovered/Resolved]
  - Melaena [Unknown]
  - Gastrointestinal erosion [Recovered/Resolved]
